FAERS Safety Report 5427574-6 (Version None)
Quarter: 2007Q3

REPORT INFORMATION
  Report Type: 
  Country: None (occurrence: None)
  Receive Date: 20070828
  Receipt Date: 20070823
  Transmission Date: 20080115
  Serious: Yes (Hospitalization, Other)
  Sender: FDA-Public Use
  Company Number: B0483695A

PATIENT
  Age: 56 Year
  Sex: Female
  Weight: 67 kg

DRUGS (4)
  1. LAPATINIB [Suspect]
     Dosage: 1250MG PER DAY
     Route: 048
     Dates: start: 20070514
  2. CAPECITABINE [Suspect]
     Route: 048
     Dates: start: 20070514
  3. ANTHRACYCLINES (UNSPECIFIED) [Concomitant]
  4. TRASTUZUMAB [Concomitant]

REACTIONS (7)
  - ABDOMINAL PAIN UPPER [None]
  - BILE DUCT STONE [None]
  - CHOLANGITIS [None]
  - JAUNDICE CHOLESTATIC [None]
  - LEFT VENTRICULAR DYSFUNCTION [None]
  - NAUSEA [None]
  - VOMITING [None]
